FAERS Safety Report 11000917 (Version 1)
Quarter: 2015Q2

REPORT INFORMATION
  Report Type: Spontaneous
  Country: US (occurrence: US)
  Receive Date: 20150408
  Receipt Date: 20150408
  Transmission Date: 20150821
  Serious: No
  Sender: FDA-Public Use
  Company Number: US-SA-2014SA167513

PATIENT
  Age: 71 Year
  Sex: Male

DRUGS (2)
  1. ALLEGRA [Suspect]
     Active Substance: FEXOFENADINE HYDROCHLORIDE
     Route: 048
  2. THYROID THERAPY [Concomitant]
     Active Substance: UNSPECIFIED INGREDIENT
     Route: 065

REACTIONS (6)
  - Musculoskeletal discomfort [Unknown]
  - Urticaria [Unknown]
  - Dizziness [Unknown]
  - Pruritus [Unknown]
  - Somnolence [Unknown]
  - Nasal congestion [Unknown]
